FAERS Safety Report 8470304-4 (Version None)
Quarter: 2012Q2

REPORT INFORMATION
  Report Type: 
  Country: None (occurrence: None)
  Receive Date: 20120627
  Receipt Date: 20120625
  Transmission Date: 20120825
  Serious: Yes (Other)
  Sender: FDA-Public Use
  Company Number: US-PFIZER INC-2012153480

PATIENT
  Age: 57 Year
  Sex: Male

DRUGS (1)
  1. CELEBREX [Suspect]
     Dosage: 200 MG (FREQUENCY UNKNOWN)
     Dates: start: 20120101

REACTIONS (1)
  - GASTRIC ULCER HAEMORRHAGE [None]
